FAERS Safety Report 19403839 (Version 1)
Quarter: 2021Q2

REPORT INFORMATION
  Report Type: Spontaneous
  Country: US (occurrence: US)
  Receive Date: 20210610
  Receipt Date: 20210610
  Transmission Date: 20210717
  Serious: No
  Sender: FDA-Public Use
  Company Number: US-ASTRAZENECA-2021A429525

PATIENT
  Age: 80 Year
  Sex: Female
  Weight: 81.6 kg

DRUGS (7)
  1. METFORMIN [Concomitant]
     Active Substance: METFORMIN HYDROCHLORIDE
  2. CARDIA XP [Concomitant]
  3. SYMBICORT [Suspect]
     Active Substance: BUDESONIDE\FORMOTEROL FUMARATE DIHYDRATE
     Indication: COUGH
     Dosage: 160?4.5 MCG TWO TIMES A DAY
     Route: 055
     Dates: end: 202104
  4. GLIMIPERIDE [Concomitant]
     Active Substance: GLIMEPIRIDE
  5. WARFARIN [Concomitant]
     Active Substance: WARFARIN
  6. SYMBICORT [Suspect]
     Active Substance: BUDESONIDE\FORMOTEROL FUMARATE DIHYDRATE
     Indication: ASTHMA
     Dosage: 160?4.5 MCG TWO TIMES A DAY
     Route: 055
     Dates: end: 202104
  7. PREDNISONE. [Concomitant]
     Active Substance: PREDNISONE
     Indication: COUGH

REACTIONS (2)
  - Skin mass [Unknown]
  - Rash pruritic [Recovered/Resolved]

NARRATIVE: CASE EVENT DATE: 2021
